FAERS Safety Report 25874281 (Version 1)
Quarter: 2025Q4

REPORT INFORMATION
  Report Type: Report from Study
  Country: US (occurrence: US)
  Receive Date: 20251002
  Receipt Date: 20251002
  Transmission Date: 20260118
  Serious: Yes (Hospitalization)
  Sender: ABBVIE
  Company Number: US-ABBVIE-6466423

PATIENT
  Sex: Female

DRUGS (1)
  1. SKYRIZI [Suspect]
     Active Substance: RISANKIZUMAB-RZAA
     Indication: Maternal exposure timing unspecified
     Route: 063

REACTIONS (5)
  - Jaundice [Unknown]
  - Exposure via breast milk [Unknown]
  - Premature baby [Unknown]
  - Heart disease congenital [Unknown]
  - Heterotaxia [Unknown]

NARRATIVE: CASE EVENT DATE: 20250101
